FAERS Safety Report 7464475-6 (Version None)
Quarter: 2011Q2

REPORT INFORMATION
  Report Type: 
  Country: None (occurrence: None)
  Receive Date: 20110509
  Receipt Date: 20110503
  Transmission Date: 20111010
  Serious: No
  Sender: FDA-Public Use
  Company Number: US-PFIZER INC-2011095138

PATIENT
  Sex: Female

DRUGS (3)
  1. CYMBALTA [Suspect]
     Dosage: UNK
  2. TRAMADOL HCL [Suspect]
     Indication: PAIN
     Dosage: UNK
  3. LYRICA [Suspect]
     Dosage: UNK

REACTIONS (3)
  - HEADACHE [None]
  - PAIN IN EXTREMITY [None]
  - ARTHRALGIA [None]
